FAERS Safety Report 8808419 (Version 3)
Quarter: 2013Q1

REPORT INFORMATION
  Report Type: Spontaneous
  Country: US (occurrence: None)
  Receive Date: 20120919
  Receipt Date: 20121015
  Transmission Date: 20140127
  Serious: Yes (Other)
  Sender: FDA-Public Use
  Company Number: US-1194110

PATIENT
  Age: 63 Year
  Sex: Female
  Weight: 70.76 kg

DRUGS (8)
  1. TRAVATAN Z 0.004 % OPHTHALMIC SOLUTION [Suspect]
     Indication: OPEN ANGLE GLAUCOMA
     Route: 047
     Dates: start: 20120626, end: 20120820
  2. PRAVASTATIN [Concomitant]
  3. LOVAZA [Concomitant]
  4. MULTIVITAMIN [Concomitant]
  5. CALCIUM [Concomitant]
  6. ASA [Concomitant]
  7. ZYRTEC [Concomitant]
  8. SUDAFED [Concomitant]

REACTIONS (10)
  - Burning sensation [None]
  - Hypoaesthesia [None]
  - Dry mouth [None]
  - Eye irritation [None]
  - Ocular hyperaemia [None]
  - Hypoaesthesia oral [None]
  - Tinnitus [None]
  - Headache [None]
  - Meralgia paraesthetica [None]
  - Pain [None]
